FAERS Safety Report 13319105 (Version 2)
Quarter: 2017Q1

REPORT INFORMATION
  Report Type: Report from Study
  Country: CA (occurrence: CA)
  Receive Date: 20170309
  Receipt Date: 20170315
  Transmission Date: 20170428
  Serious: Yes (Other)
  Sender: FDA-Public Use
  Company Number: CA-AMGEN-CANSL2017032762

PATIENT
  Age: 65 Year
  Sex: Female

DRUGS (5)
  1. PROLIA [Suspect]
     Active Substance: DENOSUMAB
     Indication: OSTEOPOROSIS POSTMENOPAUSAL
     Dosage: UNK
     Route: 065
     Dates: start: 20170217
  2. OMEGA 3 [Concomitant]
     Active Substance: OMEGA-3 FATTY ACIDS
  3. INSULIN [Concomitant]
     Active Substance: INSULIN NOS
  4. LEFLUNOMIDE. [Concomitant]
     Active Substance: LEFLUNOMIDE
  5. CALCITROL [Concomitant]
     Active Substance: CALCITRIOL

REACTIONS (15)
  - Joint lock [Unknown]
  - Limb discomfort [Unknown]
  - Rhinorrhoea [Unknown]
  - Paraesthesia [Not Recovered/Not Resolved]
  - Oxygen supplementation [Unknown]
  - Hypoaesthesia [Not Recovered/Not Resolved]
  - Blood glucose decreased [Unknown]
  - Muscular weakness [Unknown]
  - Nausea [Unknown]
  - Muscle spasms [Unknown]
  - Somnolence [Unknown]
  - Dizziness [Unknown]
  - Asthenia [Unknown]
  - Arthralgia [Unknown]
  - Vision blurred [Not Recovered/Not Resolved]

NARRATIVE: CASE EVENT DATE: 201702
